FAERS Safety Report 4702182-0 (Version None)
Quarter: 2005Q2

REPORT INFORMATION
  Report Type: 
  Country: None (occurrence: None)
  Receive Date: 20050628
  Receipt Date: 20050628
  Transmission Date: 20051028
  Serious: Yes (Hospitalization)
  Sender: FDA-Public Use
  Company Number: None

PATIENT
  Sex: Male
  Weight: 106.1417 kg

DRUGS (23)
  1. ALLOPURINOL [Suspect]
     Indication: GOUT
     Dosage: 50MG   DAILY   ORAL
     Route: 048
     Dates: start: 20050505, end: 20050614
  2. AZATHIOPRINE [Suspect]
     Indication: RENAL TRANSPLANT
     Dosage: 125MG   DAILY   ORAL
     Route: 048
     Dates: start: 19940324, end: 20050616
  3. ALBUTEROL [Concomitant]
  4. ALLOPURINOL [Concomitant]
  5. AMOXICILLIN [Concomitant]
  6. CALCITRIOL [Concomitant]
  7. SANDIMMUNE [Concomitant]
  8. EZETIMIBE [Concomitant]
  9. FENOFIBRATE [Concomitant]
  10. FLUNISOLIDE [Concomitant]
  11. FLUTICASNE/SALMT [Concomitant]
  12. GATIFLOXACIN [Concomitant]
  13. GLIPIZIDE [Concomitant]
  14. ISOSORBIDE DINITRATE [Concomitant]
  15. LEVOTHYROXINE [Concomitant]
  16. LORATADINE [Concomitant]
  17. METOPROLOL TARTRATE [Concomitant]
  18. MYCOPHENOLATE MOFETIL [Concomitant]
  19. PRAVASTATIN [Concomitant]
  20. PREDNISONE [Concomitant]
  21. TERAZOSIN [Concomitant]
  22. TIOTROPIUM [Concomitant]
  23. VALSARTAN [Concomitant]

REACTIONS (5)
  - DRUG TOXICITY [None]
  - DYSPNOEA [None]
  - FATIGUE [None]
  - GOUT [None]
  - HYPOTENSION [None]
